FAERS Safety Report 5986681-X (Version None)
Quarter: 2008Q4

REPORT INFORMATION
  Report Type: 
  Country: None (occurrence: None)
  Receive Date: 20081203
  Receipt Date: 20081127
  Transmission Date: 20090506
  Serious: Yes (Death)
  Sender: FDA-Public Use
  Company Number: 2008JP005356

PATIENT
  Age: 72 Year
  Sex: Female

DRUGS (1)
  1. PROGRAF [Suspect]
     Indication: RHEUMATOID ARTHRITIS
     Dosage: UNK, UNK, ORAL
     Route: 048
     Dates: end: 20081010

REACTIONS (5)
  - DEHYDRATION [None]
  - DIALYSIS [None]
  - NASOPHARYNGITIS [None]
  - OPERATIVE HAEMORRHAGE [None]
  - RENAL DISORDER [None]
